FAERS Safety Report 16144547 (Version 1)
Quarter: 2019Q2

REPORT INFORMATION
  Report Type: Report from Study
  Country: None (occurrence: CA)
  Receive Date: 20190402
  Receipt Date: 20190402
  Transmission Date: 20190711
  Serious: Yes (Other)
  Sender: FDA-Public Use
  Company Number: CA-ABBVIE-19K-028-2724811-00

PATIENT
  Age: 67 Year
  Sex: Female

DRUGS (1)
  1. HUMIRA [Suspect]
     Active Substance: ADALIMUMAB
     Indication: RHEUMATOID ARTHRITIS
     Route: 058
     Dates: start: 20120727

REACTIONS (4)
  - Arthralgia [Recovering/Resolving]
  - Psoriasis [Recovering/Resolving]
  - Infusion [Unknown]
  - Tooth abscess [Unknown]

NARRATIVE: CASE EVENT DATE: 20190326
